FAERS Safety Report 10312599 (Version 1)
Quarter: 2014Q3

REPORT INFORMATION
  Report Type: Spontaneous
  Country: US (occurrence: None)
  Receive Date: 20140716
  Receipt Date: 20140716
  Transmission Date: 20150326
  Serious: No
  Sender: FDA-Public Use
  Company Number: None

PATIENT
  Age: 34 Year
  Sex: Female
  Weight: 54.43 kg

DRUGS (1)
  1. XULANE [Suspect]
     Active Substance: ETHINYL ESTRADIOL\NORELGESTROMIN
     Indication: CONTRACEPTION
     Route: 061
     Dates: start: 20140707, end: 20140714

REACTIONS (10)
  - Dizziness [None]
  - Abdominal distension [None]
  - Product substitution issue [None]
  - Nausea [None]
  - Weight increased [None]
  - Product quality issue [None]
  - Acne [None]
  - Device adhesion issue [None]
  - Drug effect decreased [None]
  - Vomiting [None]

NARRATIVE: CASE EVENT DATE: 20140707
